FAERS Safety Report 7156446-4 (Version None)
Quarter: 2010Q4

REPORT INFORMATION
  Report Type: 
  Country: None (occurrence: None)
  Receive Date: 20101130
  Receipt Date: 20101025
  Transmission Date: 20110411
  Serious: Yes (Death, Life-Threatening)
  Sender: FDA-Public Use
  Company Number: 54973

PATIENT
  Age: 3 Month
  Sex: Male
  Weight: 7.2576 kg

DRUGS (1)
  1. HYLAND'S TEETHING TABLETS [Suspect]
     Dosage: NOT SURE BUT POSSIBLY

REACTIONS (3)
  - PETIT MAL EPILEPSY [None]
  - PYREXIA [None]
  - SUDDEN INFANT DEATH SYNDROME [None]
